FAERS Safety Report 15565101 (Version 1)
Quarter: 2018Q4

REPORT INFORMATION
  Report Type: Spontaneous
  Country: US (occurrence: US)
  Receive Date: 20181024
  Receipt Date: 20181024
  Transmission Date: 20190205
  Serious: Yes (Hospitalization)
  Sender: FDA-Public Use
  Company Number: None

PATIENT
  Age: 72 Year
  Sex: Female
  Weight: 57.6 kg

DRUGS (1)
  1. GEMCITABINE HYDROCHLORIDE. [Suspect]
     Active Substance: GEMCITABINE HYDROCHLORIDE
     Dates: end: 20181012

REACTIONS (9)
  - Nausea [None]
  - Effusion [None]
  - Hypoxia [None]
  - Malaise [None]
  - Chest X-ray abnormal [None]
  - Decreased appetite [None]
  - Urine analysis abnormal [None]
  - Laboratory test interference [None]
  - Pyrexia [None]

NARRATIVE: CASE EVENT DATE: 20181015
